FAERS Safety Report 17051990 (Version 1)
Quarter: 2019Q4

REPORT INFORMATION
  Report Type: Report from Study
  Country: SE (occurrence: SE)
  Receive Date: 20191120
  Receipt Date: 20191120
  Transmission Date: 20200122
  Serious: Yes (Death)
  Sender: FDA-Public Use
  Company Number: SE-ELI_LILLY_AND_COMPANY-SE201911006701

PATIENT

DRUGS (2)
  1. GEMCITABINE HYDROCHLORIDE. [Suspect]
     Active Substance: GEMCITABINE HYDROCHLORIDE
     Indication: TRANSITIONAL CELL CARCINOMA
     Dosage: 1000 MG/M2, ON DAYS 1 AND 8, Q21 DAYS
     Route: 065
  2. VINFLUNINE [Concomitant]
     Active Substance: VINFLUNINE
     Indication: TRANSITIONAL CELL CARCINOMA
     Dosage: UNK, CYCLICAL
     Route: 065

REACTIONS (2)
  - Febrile neutropenia [Fatal]
  - Infection [Fatal]
